FAERS Safety Report 6102909-X (Version None)
Quarter: 2009Q1

REPORT INFORMATION
  Report Type: 
  Country: None (occurrence: None)
  Receive Date: 20090303
  Receipt Date: 20090303
  Transmission Date: 20090719
  Serious: Yes (Other)
  Sender: FDA-Public Use
  Company Number: None

PATIENT
  Age: 21 Year
  Sex: Female
  Weight: 56.246 kg

DRUGS (1)
  1. KENALOG-40 [Suspect]
     Indication: DERMATITIS ALLERGIC
     Dosage: 40MG 1 IM
     Route: 030
     Dates: start: 20080930, end: 20080930

REACTIONS (3)
  - INJECTION SITE DISCOLOURATION [None]
  - INJECTION SITE REACTION [None]
  - MENORRHAGIA [None]
